FAERS Safety Report 9606780 (Version 2)
Quarter: 2013Q4

REPORT INFORMATION
  Report Type: Spontaneous
  Country: US (occurrence: US)
  Receive Date: 20131008
  Receipt Date: 20131008
  Transmission Date: 20140711
  Serious: No
  Sender: FDA-Public Use
  Company Number: US-AMGEN-USASP2013059545

PATIENT
  Age: 63 Year
  Sex: Female
  Weight: 40.64 kg

DRUGS (12)
  1. PROLIA [Suspect]
     Indication: OSTEOPOROSIS POSTMENOPAUSAL
     Dosage: 60 MG, Q6MO
     Route: 058
     Dates: start: 20130809
  2. VITAMIN E                          /00110501/ [Concomitant]
  3. CALCIUM WITH VITAMIN D             /00944201/ [Concomitant]
  4. VITAMIN C                          /00008001/ [Concomitant]
  5. MULTIVITAMIN                       /00097801/ [Concomitant]
  6. B12                                /00056201/ [Concomitant]
  7. MAGNESIUM [Concomitant]
  8. ZINC [Concomitant]
  9. GLUCOSAMINE [Concomitant]
     Indication: ARTHRITIS
     Dosage: UNK UNK, ONE TIME DOSE
     Route: 048
  10. ASA [Concomitant]
     Indication: PROPHYLAXIS
     Dosage: 81 MG, ONE TIME DOSE
     Route: 048
  11. CALCIUM MAGNESIUM WITH VITAMIN D3 [Concomitant]
     Indication: OSTEOPOROSIS
     Dosage: UNK UNK, ONE TIME DOSE
     Route: 048
  12. VITAMIN D                          /00107901/ [Concomitant]
     Indication: OSTEOPOROSIS
     Dosage: 1000 IU, ONE TIME DOSE
     Route: 048

REACTIONS (12)
  - Arthralgia [Unknown]
  - Bone pain [Recovering/Resolving]
  - Injection site rash [Recovered/Resolved]
  - Swollen tongue [Recovered/Resolved]
  - Rash macular [Recovered/Resolved]
  - Rash pustular [Recovered/Resolved]
  - Rash pruritic [Recovered/Resolved]
  - Feeling abnormal [Unknown]
  - Tongue discolouration [Unknown]
  - Eye swelling [Recovered/Resolved]
  - Skin exfoliation [Unknown]
  - Asthenia [Unknown]
